FAERS Safety Report 6440951-X (Version None)
Quarter: 2009Q4

REPORT INFORMATION
  Report Type: 
  Country: None (occurrence: None)
  Receive Date: 20091116
  Receipt Date: 20091109
  Transmission Date: 20100525
  Serious: Yes (Death, Other)
  Sender: FDA-Public Use
  Company Number: IN-ROCHE-636945

PATIENT
  Sex: Female

DRUGS (3)
  1. MYCOPHENOLATE MOFETIL [Suspect]
     Indication: RENAL TRANSPLANT
     Route: 065
     Dates: start: 20070405
  2. BELATACEPT [Suspect]
     Indication: RENAL TRANSPLANT
     Dosage: DOSE BLINDED
     Route: 042
     Dates: start: 20070406
  3. PREDNISOLONE [Suspect]
     Indication: RENAL TRANSPLANT
     Route: 065
     Dates: start: 20070409

REACTIONS (4)
  - ANAEMIA [None]
  - ARRHYTHMIA [None]
  - MYOCARDIAL INFARCTION [None]
  - PULMONARY TUBERCULOSIS [None]
